FAERS Safety Report 25697859 (Version 1)
Quarter: 2025Q3

REPORT INFORMATION
  Report Type: Report from Study
  Country: EU (occurrence: EU)
  Receive Date: 20250819
  Receipt Date: 20250819
  Transmission Date: 20251020
  Serious: Yes (Hospitalization)
  Sender: GLAXOSMITHKLINE
  Company Number: EU-GSK-PL2019GSK241328

PATIENT
  Age: 63 Year
  Sex: Male

DRUGS (3)
  1. BUPROPION HYDROCHLORIDE [Interacting]
     Active Substance: BUPROPION HYDROCHLORIDE
     Indication: Depression
  2. PROPAFENONE [Interacting]
     Active Substance: PROPAFENONE
     Indication: Cardiovascular disorder
  3. METOPROLOL [Concomitant]
     Active Substance: METOPROLOL
     Indication: Product used for unknown indication

REACTIONS (3)
  - Drug interaction [Unknown]
  - Bradycardia [Unknown]
  - Dry mouth [Unknown]
